FAERS Safety Report 8488042-0 (Version None)
Quarter: 2012Q3

REPORT INFORMATION
  Report Type: 
  Country: None (occurrence: None)
  Receive Date: 20120705
  Receipt Date: 20120626
  Transmission Date: 20120928
  Serious: Yes (Other)
  Sender: FDA-Public Use
  Company Number: US-BRISTOL-MYERS SQUIBB COMPANY-16712978

PATIENT
  Age: 4 Decade
  Sex: Male

DRUGS (1)
  1. DIDANOSINE [Suspect]
     Dosage: DISCONTINUED 4 MONTHS AGO
     Dates: end: 20120101

REACTIONS (1)
  - HEPATIC CIRRHOSIS [None]
